FAERS Safety Report 6261460-7 (Version None)
Quarter: 2009Q3

REPORT INFORMATION
  Report Type: 
  Country: None (occurrence: None)
  Receive Date: 20090707
  Receipt Date: 20090707
  Transmission Date: 20100115
  Serious: Yes (Other)
  Sender: FDA-Public Use
  Company Number: None

PATIENT
  Age: 31 Year
  Sex: Female
  Weight: 48.9885 kg

DRUGS (1)
  1. HYDROXYCHLOROQUINE 200 MG [Suspect]
     Indication: SYSTEMIC LUPUS ERYTHEMATOSUS
     Dosage: 200MG 2 X PER DAY PO APPROX 6 WEEKS
     Route: 048
     Dates: start: 20090401, end: 20090520

REACTIONS (3)
  - CONDITION AGGRAVATED [None]
  - PRODUCT SUBSTITUTION ISSUE [None]
  - SYSTEMIC LUPUS ERYTHEMATOSUS [None]
